FAERS Safety Report 8304387-9 (Version None)
Quarter: 2012Q2

REPORT INFORMATION
  Report Type: 
  Country: None (occurrence: None)
  Receive Date: 20120423
  Receipt Date: 20120410
  Transmission Date: 20120825
  Serious: No
  Sender: FDA-Public Use
  Company Number: JP-ELI_LILLY_AND_COMPANY-JP201204005272

PATIENT
  Age: 63 Year
  Sex: Female

DRUGS (3)
  1. LYRICA [Concomitant]
     Route: 048
  2. NEUROTROPIN [Concomitant]
     Route: 048
  3. CYMBALTA [Suspect]
     Indication: PAIN
     Dosage: 40 MG, QD
     Route: 048
     Dates: start: 20111130, end: 20120120

REACTIONS (3)
  - VOMITING [None]
  - LIVER DISORDER [None]
  - OFF LABEL USE [None]
